FAERS Safety Report 17231414 (Version 2)
Quarter: 2020Q1

REPORT INFORMATION
  Report Type: Spontaneous
  Country: PL (occurrence: PL)
  Receive Date: 20200103
  Receipt Date: 20200116
  Transmission Date: 20200409
  Serious: No
  Sender: FDA-Public Use
  Company Number: PL-PFIZER INC-2019562772

PATIENT
  Age: 62 Year
  Sex: Female
  Weight: 78 kg

DRUGS (16)
  1. FENOFIBRATE. [Concomitant]
     Active Substance: FENOFIBRATE
     Dosage: 267 MG, 1X/DAY
  2. RANITIDINE. [Concomitant]
     Active Substance: RANITIDINE
     Dosage: 20 MG, 1X/DAY
  3. SULPIRIDE [Concomitant]
     Active Substance: SULPIRIDE
     Dosage: 50 MG, 1X/DAY
  4. BISOPROLOL [Concomitant]
     Active Substance: BISOPROLOL
     Dosage: 2.5 MG, 1X/DAY
  5. VALSARTAN. [Concomitant]
     Active Substance: VALSARTAN
     Dosage: 80 MG, 1X/DAY
  6. POTASSIUM CHLORIDE. [Concomitant]
     Active Substance: POTASSIUM CHLORIDE
     Dosage: 391 MG, 1X/DAY
  7. VITAMIN C [Concomitant]
     Active Substance: ASCORBIC ACID
     Dosage: 20 MG, 1X/DAY
  8. GLICLAZIDE [Concomitant]
     Active Substance: GLICLAZIDE
     Dosage: 60 MG, 1X/DAY
  9. GLUCOSAMINE SULFATE POTASSIUM CHLORIDE [Concomitant]
     Active Substance: GLUCOSAMINE SULFATE POTASSIUM CHLORIDE
     Dosage: 500 MG/ 166.7 MG, 1X/DAY
  10. METFORMIN [Concomitant]
     Active Substance: METFORMIN HYDROCHLORIDE
     Dosage: 1000 MG, 2X/DAY
  11. PERINDOPRIL + INDAPAMIDE [Concomitant]
     Dosage: 5 MG/ 1.25 MG 1X/DAY
  12. ACETYLSALICYLIC ACID [Concomitant]
     Active Substance: ASPIRIN
     Dosage: 75 MG, 1X/DAY
  13. ATORVASTATIN CALCIUM. [Suspect]
     Active Substance: ATORVASTATIN CALCIUM
     Indication: HYPERTRIGLYCERIDAEMIA
     Dosage: 20 MG, 1X/DAY
  14. PENTAERYTHRITOL. [Concomitant]
     Active Substance: PENTAERYTHRITOL
     Dosage: 100 MG, 1X/DAY
  15. CINNARIZINE [Concomitant]
     Active Substance: CINNARIZINE
     Dosage: 25 MG, 3X/DAY
  16. MAGNESIUM LACTATE/PYRIDOXINE HYDROCHLORIDE [Concomitant]
     Active Substance: MAGNESIUM LACTATE\PYRIDOXINE HYDROCHLORIDE
     Dosage: 470 MG/ 5MG, 1X/DAY

REACTIONS (2)
  - Drug ineffective [Unknown]
  - Alanine aminotransferase increased [Unknown]
